FAERS Safety Report 4855850-4 (Version None)
Quarter: 2005Q4

REPORT INFORMATION
  Report Type: 
  Country: None (occurrence: None)
  Receive Date: 20051216
  Receipt Date: 20040719
  Transmission Date: 20060501
  Serious: Yes (Other)
  Sender: FDA-Public Use
  Company Number: GB-GLAXOSMITHKLINE-B0341390A

PATIENT
  Sex: Male

DRUGS (4)
  1. NIQUITIN CQ PATCH [Suspect]
     Route: 062
     Dates: start: 20020101
  2. NICOTINE [Suspect]
     Route: 062
  3. HEART MEDICATION [Concomitant]
     Route: 048
  4. HEART MEDICATION [Concomitant]

REACTIONS (6)
  - ADVERSE DRUG REACTION [None]
  - APPLICATION SITE ERYTHEMA [None]
  - APPLICATION SITE EXFOLIATION [None]
  - APPLICATION SITE PRURITUS [None]
  - APPLICATION SITE VESICLES [None]
  - DERMATITIS ALLERGIC [None]
